FAERS Safety Report 6525143-8 (Version None)
Quarter: 2009Q4

REPORT INFORMATION
  Report Type: 
  Country: None (occurrence: None)
  Receive Date: 20091214
  Receipt Date: 20090219
  Transmission Date: 20100525
  Serious: Yes (Other)
  Sender: FDA-Public Use
  Company Number: 615776

PATIENT
  Age: 51 Year
  Sex: Male
  Weight: 71.7 kg

DRUGS (5)
  1. PEGASYS [Suspect]
     Indication: HEPATITIS C
     Dosage: 180 UG 1 PER WEEK INTRAMUSCULAR
     Route: 030
     Dates: start: 20081226
  2. RIBAVIRIN [Suspect]
     Indication: HEPATITIS C
     Dosage: 400 MG 2 PER DAY ORAL
     Route: 048
     Dates: start: 20081226
  3. CYMBALTA [Concomitant]
  4. FLEXERIL [Concomitant]
  5. PHENERGAN HCL [Concomitant]

REACTIONS (1)
  - THROMBOCYTOPENIA [None]
